FAERS Safety Report 8267854-2 (Version None)
Quarter: 2012Q2

REPORT INFORMATION
  Report Type: 
  Country: None (occurrence: None)
  Receive Date: 20120409
  Receipt Date: 20120329
  Transmission Date: 20120825
  Serious: Yes (Other)
  Sender: FDA-Public Use
  Company Number: US-BAYER-2012-019847

PATIENT
  Age: 39 Year
  Sex: Female

DRUGS (8)
  1. DROSPIRENONE AND ETHINYL ESTRADIOL [Suspect]
     Route: 048
  2. VISTARIL [Concomitant]
     Dosage: 50 MG, UNK
     Route: 030
     Dates: start: 20100202
  3. ANCEF [Concomitant]
     Dosage: 1 G, EVERY 8 HOURS
     Route: 042
     Dates: start: 20100202
  4. YASMIN [Suspect]
     Route: 048
  5. TORADOL [Concomitant]
     Dosage: 30 MG, UNK
     Route: 042
     Dates: start: 20100202
  6. ROBITUSSIN WITH CODEINE [Concomitant]
     Dosage: UNK
  7. DEMEROL [Concomitant]
     Dosage: 50 MG, UNK
     Route: 030
     Dates: start: 20100202
  8. VITAMIN TAB [Concomitant]
     Dosage: UNK

REACTIONS (2)
  - PAIN [None]
  - DEEP VEIN THROMBOSIS [None]
